FAERS Safety Report 8012198-7 (Version None)
Quarter: 2011Q4

REPORT INFORMATION
  Report Type: 
  Country: None (occurrence: None)
  Receive Date: 20111228
  Receipt Date: 20111219
  Transmission Date: 20120403
  Serious: Yes (Hospitalization)
  Sender: FDA-Public Use
  Company Number: JP-ASTRAZENECA-2011SE77888

PATIENT
  Age: 76 Year
  Sex: Male

DRUGS (1)
  1. NEXIUM [Suspect]
     Route: 048
     Dates: start: 20111001, end: 20111214

REACTIONS (4)
  - GASTROOESOPHAGEAL REFLUX DISEASE [None]
  - FAECES DISCOLOURED [None]
  - CONDITION AGGRAVATED [None]
  - ANAEMIA [None]
